FAERS Safety Report 6238368-6 (Version None)
Quarter: 2009Q2

REPORT INFORMATION
  Report Type: 
  Country: None (occurrence: None)
  Receive Date: 20090622
  Receipt Date: 20090610
  Transmission Date: 20091009
  Serious: Yes (Death, Other)
  Sender: FDA-Public Use
  Company Number: US-BIOGENIDEC-2009BI010915

PATIENT
  Age: 42 Year
  Sex: Male
  Weight: 88 kg

DRUGS (1)
  1. TYSABRI [Suspect]
     Indication: MULTIPLE SCLEROSIS
     Route: 042
     Dates: start: 20080409, end: 20081001

REACTIONS (5)
  - ALCOHOL POISONING [None]
  - HEAD INJURY [None]
  - INJURY [None]
  - LIMB INJURY [None]
  - ROAD TRAFFIC ACCIDENT [None]
